FAERS Safety Report 5258348-7 (Version None)
Quarter: 2007Q1

REPORT INFORMATION
  Report Type: 
  Country: None (occurrence: None)
  Receive Date: 20070306
  Receipt Date: 20070306
  Transmission Date: 20070707
  Serious: No
  Sender: FDA-Public Use
  Company Number: None

PATIENT
  Age: 66 Year
  Sex: Male
  Weight: 113.3993 kg

DRUGS (1)
  1. RITUXIMAB EVERY 8WKS [Suspect]
     Indication: NON-HODGKIN'S LYMPHOMA
     Dosage: 900MG
     Dates: start: 20050701, end: 20070201

REACTIONS (1)
  - CRYPTOGENIC ORGANISING PNEUMONIA [None]
